FAERS Safety Report 14079448 (Version 2)
Quarter: 2018Q1

REPORT INFORMATION
  Report Type: Spontaneous
  Country: JP (occurrence: JP)
  Receive Date: 20171012
  Receipt Date: 20180102
  Transmission Date: 20180508
  Serious: Yes (Death, Hospitalization)
  Sender: FDA-Public Use
  Company Number: JP-PFIZER INC-2017438520

PATIENT
  Age: 65 Year
  Sex: Male
  Weight: 50 kg

DRUGS (21)
  1. ELPLAT [Suspect]
     Active Substance: OXALIPLATIN
     Dosage: 124.7 MG, 1X/DAY (124.7 MG/BODY (85 MG/M2))
     Route: 041
     Dates: start: 20170126, end: 20170126
  2. 5-FU [Suspect]
     Active Substance: FLUOROURACIL
     Dosage: 3520.8 MG, ONCE IN 2DAYS (3520.8 MG/BODY/D1-2 (2400 MG/M2/D1-2))
     Route: 041
     Dates: start: 20170112, end: 20170112
  3. 5-FU [Suspect]
     Active Substance: FLUOROURACIL
     Dosage: 3520.8 MG, ONCE IN 2DAYS (3520.8 MG/BODY/D1-2 (2400 MG/M2/D1-2))
     Route: 041
     Dates: start: 20170126, end: 20170126
  4. LEVOFOLINATE CALCIUM [Suspect]
     Active Substance: LEVOLEUCOVORIN CALCIUM
     Indication: PANCREATIC CARCINOMA
     Dosage: 293.4 MG, 1X/DAY (293.4 MG/BODY (200 MG/M2))
     Route: 041
     Dates: start: 20161227, end: 20161227
  5. LEVOFOLINATE CALCIUM [Suspect]
     Active Substance: LEVOLEUCOVORIN CALCIUM
     Dosage: 293.4 MG, 1X/DAY (293.4 MG/BODY (200 MG/M2))
     Route: 041
     Dates: start: 20170126, end: 20170126
  6. ALOXI [Concomitant]
     Active Substance: PALONOSETRON HYDROCHLORIDE
     Dosage: UNK
     Dates: start: 20161227, end: 20170323
  7. PROEMEND [Concomitant]
     Active Substance: FOSAPREPITANT
     Dosage: UNK
     Dates: start: 20170112, end: 20170323
  8. ELPLAT [Suspect]
     Active Substance: OXALIPLATIN
     Indication: PANCREATIC CARCINOMA
     Dosage: 124.7 MG, 1X/DAY (124.7 MG/BODY (85 MG/M2))
     Route: 041
     Dates: start: 20161227, end: 20161227
  9. ELPLAT [Suspect]
     Active Substance: OXALIPLATIN
     Dosage: 124.7 MG, 1X/DAY (124.7 MG/BODY (85 MG/M2))
     Route: 041
     Dates: start: 20170112, end: 20170112
  10. LEVOFOLINATE CALCIUM [Suspect]
     Active Substance: LEVOLEUCOVORIN CALCIUM
     Dosage: 293.4 MG, 1X/DAY (293.4 MG/BODY (200 MG/M2))
     Route: 041
     Dates: end: 20170323
  11. 5-FU [Suspect]
     Active Substance: FLUOROURACIL
     Indication: PANCREATIC CARCINOMA
     Dosage: 3520.8 MG, ONCE IN 2DAYS (3520.8 MG/BODY/D1-2 (2400 MG/M2/D1-2))
     Route: 041
     Dates: start: 20161227, end: 20161227
  12. CAMPTO [Suspect]
     Active Substance: IRINOTECAN
     Indication: PANCREATIC CARCINOMA
     Dosage: 220.1 MG, 1X/DAY (220.1 MG/BODY (150 MG/M2))
     Route: 041
     Dates: start: 20161227, end: 20161227
  13. LEVOFOLINATE CALCIUM [Suspect]
     Active Substance: LEVOLEUCOVORIN CALCIUM
     Dosage: 293.4 MG, 1X/DAY (293.4 MG/BODY (200 MG/M2))
     Route: 041
     Dates: start: 20170112, end: 20170112
  14. EMEND [Concomitant]
     Active Substance: APREPITANT
     Dosage: UNK
     Dates: start: 20161227, end: 20161229
  15. ELPLAT [Suspect]
     Active Substance: OXALIPLATIN
     Dosage: 124.7 MG, 1X/DAY (124.7 MG/BODY (85 MG/M2))
     Route: 041
     Dates: end: 20170323
  16. 5-FU [Suspect]
     Active Substance: FLUOROURACIL
     Dosage: 3520.8 MG, ONCE IN 2DAYS (3520.8 MG/BODY/D1-2 (2400 MG/M2/D1-2))
     Route: 041
     Dates: end: 20170323
  17. G LASTA [Concomitant]
     Active Substance: PEGFILGRASTIM
     Dosage: UNK
     Dates: start: 20170115
  18. DEXART [Concomitant]
     Active Substance: DEXAMETHASONE SODIUM PHOSPHATE
     Dosage: UNK
     Dates: start: 20161227, end: 20170323
  19. CAMPTO [Suspect]
     Active Substance: IRINOTECAN
     Dosage: 220.1 MG, 1X/DAY (220.1 MG/BODY (150 MG/M2))
     Route: 041
     Dates: start: 20170112, end: 20170112
  20. CAMPTO [Suspect]
     Active Substance: IRINOTECAN
     Dosage: 220.1 MG, 1X/DAY (220.1 MG/BODY (150 MG/M2))
     Route: 041
     Dates: start: 20170126, end: 20170126
  21. CAMPTO [Suspect]
     Active Substance: IRINOTECAN
     Dosage: 220.1 MG, 1X/DAY (220.1 MG/BODY (150 MG/M2))
     Route: 041
     Dates: end: 20170323

REACTIONS (2)
  - Neoplasm progression [Fatal]
  - Herpes zoster [Recovered/Resolved]

NARRATIVE: CASE EVENT DATE: 20170125
